FAERS Safety Report 8549055-3 (Version None)
Quarter: 2012Q3

REPORT INFORMATION
  Report Type: 
  Country: None (occurrence: None)
  Receive Date: 20120730
  Receipt Date: 20120725
  Transmission Date: 20120928
  Serious: No
  Sender: FDA-Public Use
  Company Number: US-PFIZER INC-2012180587

PATIENT

DRUGS (7)
  1. AMILORIDE HCL AND HYDROCHLOROTHIAZIDE [Suspect]
     Dosage: UNK
  2. BUPROPION HCL [Suspect]
     Dosage: UNK
  3. BEXTRA [Suspect]
     Dosage: UNK
  4. FLUOXETINE HYDROCHLORIDE [Suspect]
     Dosage: UNK
  5. DICLOXACILLIN [Suspect]
     Dosage: UNK
  6. LEXAPRO [Suspect]
     Dosage: UNK
  7. VICODIN [Suspect]
     Dosage: UNK

REACTIONS (3)
  - ABDOMINAL DISCOMFORT [None]
  - DRUG HYPERSENSITIVITY [None]
  - PAIN [None]
